FAERS Safety Report 25144954 (Version 2)
Quarter: 2025Q2

REPORT INFORMATION
  Report Type: Spontaneous
  Country: GB (occurrence: GB)
  Receive Date: 20250401
  Receipt Date: 20250616
  Transmission Date: 20250716
  Serious: Yes (Other)
  Sender: ABBVIE
  Company Number: GB-MHRA-ADR 26823817

PATIENT
  Age: 65 Year
  Sex: Female

DRUGS (11)
  1. MESALAMINE [Suspect]
     Active Substance: MESALAMINE
     Indication: Colitis ulcerative
     Route: 065
  2. Salofalk [Concomitant]
     Indication: Inflammation
     Dosage: DOSE DESCRIPTION: UNK
     Dates: start: 20220629
  3. ENTYVIO [Suspect]
     Active Substance: VEDOLIZUMAB
     Indication: Colitis ulcerative
     Route: 042
  4. ENTYVIO [Suspect]
     Active Substance: VEDOLIZUMAB
     Indication: Colitis ulcerative
     Dosage: DOSE DESCRIPTION: 300 MILLIGRAM
     Route: 042
     Dates: start: 20191017
  5. ENTYVIO [Suspect]
     Active Substance: VEDOLIZUMAB
     Indication: Colitis ulcerative
     Route: 042
  6. ENTYVIO [Suspect]
     Active Substance: VEDOLIZUMAB
     Indication: Colitis ulcerative
     Dosage: DOSE DESCRIPTION: 300 MILLIGRAM
     Route: 042
  7. ENTYVIO [Suspect]
     Active Substance: VEDOLIZUMAB
     Indication: Colitis ulcerative
     Dosage: DOSE DESCRIPTION: 300 MILLIGRAM
     Route: 042
  8. ENTYVIO [Suspect]
     Active Substance: VEDOLIZUMAB
     Indication: Colitis ulcerative
     Dosage: DOSE DESCRIPTION: 300 MILLIGRAM
     Route: 042
  9. ENTYVIO [Suspect]
     Active Substance: VEDOLIZUMAB
     Indication: Colitis ulcerative
     Dosage: 300 MILLIGRAM, Q4WEEKS
     Route: 042
  10. ENTYVIO [Suspect]
     Active Substance: VEDOLIZUMAB
     Indication: Colitis ulcerative
     Route: 042
  11. BUDESONIDE [Concomitant]
     Active Substance: BUDESONIDE
     Indication: Product used for unknown indication
     Route: 065

REACTIONS (13)
  - Basal cell carcinoma [Unknown]
  - Defaecation urgency [Unknown]
  - Inflammation [Unknown]
  - Fatigue [Unknown]
  - Abdominal pain [Unknown]
  - Diarrhoea [Unknown]
  - Abdominal pain upper [Unknown]
  - Flatulence [Unknown]
  - Abdominal pain lower [Unknown]
  - Vitamin D deficiency [Unknown]
  - Emphysema [Not Recovered/Not Resolved]
  - Hepatic steatosis [Not Recovered/Not Resolved]
  - Chronic obstructive pulmonary disease [Not Recovered/Not Resolved]
